FAERS Safety Report 8989630 (Version 2)
Quarter: 2013Q1

REPORT INFORMATION
  Report Type: Report from Study
  Country: US (occurrence: US)
  Receive Date: 20121228
  Receipt Date: 20130123
  Transmission Date: 20140127
  Serious: Yes (Other)
  Sender: FDA-Public Use
  Company Number: US-009507513-1212USA010406

PATIENT
  Sex: 0

DRUGS (1)
  1. IMIPENEM (+) CILASTATIN SODIUM [Suspect]
     Indication: URINARY TRACT INFECTION
     Dosage: 500 MG, Q6H
     Route: 042

REACTIONS (1)
  - Urosepsis [Unknown]
